FAERS Safety Report 5804290-X (Version None)
Quarter: 2008Q3

REPORT INFORMATION
  Report Type: 
  Country: None (occurrence: None)
  Receive Date: 20080707
  Receipt Date: 20080626
  Transmission Date: 20090109
  Serious: Yes (Other)
  Sender: FDA-Public Use
  Company Number: 2008PV000045

PATIENT
  Age: 33 Year
  Sex: Female

DRUGS (3)
  1. DEPOCYT [Suspect]
     Indication: LYMPHOMA
     Dosage: 50 MG; INTH
     Route: 037
  2. DEXAMETHASONE [Concomitant]
  3. METHOTREXATE [Concomitant]

REACTIONS (10)
  - ATAXIA [None]
  - BALANCE DISORDER [None]
  - CENTRAL NERVOUS SYSTEM INFLAMMATION [None]
  - DISEASE PROGRESSION [None]
  - HEADACHE [None]
  - INTRACRANIAL PRESSURE INCREASED [None]
  - NEUROTOXICITY [None]
  - PAPILLOEDEMA [None]
  - VISUAL IMPAIRMENT [None]
  - WHITE BLOOD CELL COUNT INCREASED [None]
